FAERS Safety Report 7180556-9 (Version None)
Quarter: 2010Q4

REPORT INFORMATION
  Report Type: 
  Country: None (occurrence: None)
  Receive Date: 20101221
  Receipt Date: 20101213
  Transmission Date: 20110411
  Serious: Yes (Hospitalization)
  Sender: FDA-Public Use
  Company Number: US-GILEAD-2010-0032545

PATIENT
  Sex: Male
  Weight: 122.58 kg

DRUGS (9)
  1. LETAIRIS [Suspect]
     Indication: PULMONARY ARTERIAL HYPERTENSION
     Route: 048
     Dates: start: 20100212
  2. ASPIRIN [Concomitant]
  3. TOPROL-XL [Concomitant]
  4. FLOMAX [Concomitant]
  5. QUINAPRIL [Concomitant]
  6. LASIX [Concomitant]
  7. ZOLPIDEM [Concomitant]
  8. SAW PALMETTO [Concomitant]
  9. GLUCOSAMINE [Concomitant]

REACTIONS (2)
  - OEDEMA [None]
  - SKIN INFECTION [None]
